FAERS Safety Report 5028298-X (Version None)
Quarter: 2006Q2

REPORT INFORMATION
  Report Type: 
  Country: None (occurrence: None)
  Receive Date: 20060503
  Receipt Date: 20060130
  Transmission Date: 20061013
  Serious: No
  Sender: FDA-Public Use
  Company Number: FACT0600045

PATIENT
  Age: 46 Year
  Sex: Male

DRUGS (3)
  1. FACTIVE [Suspect]
     Indication: RESPIRATORY TRACT INFECTION BACTERIAL
     Dosage: 320 MG
     Dates: start: 20060116, end: 20060116
  2. TEGRETOL [Concomitant]
  3. ALLEGRA [Concomitant]

REACTIONS (1)
  - RASH MACULAR [None]
